FAERS Safety Report 6016599-8 (Version None)
Quarter: 2008Q4

REPORT INFORMATION
  Report Type: 
  Country: None (occurrence: None)
  Receive Date: 20081222
  Receipt Date: 20081212
  Transmission Date: 20090506
  Serious: Yes (Hospitalization)
  Sender: FDA-Public Use
  Company Number: PHHY2008DE31742

PATIENT
  Age: 69 Year
  Sex: Female

DRUGS (1)
  1. FEMARA [Suspect]
     Indication: BREAST CANCER
     Dosage: UNK
     Route: 048
     Dates: start: 20080101, end: 20081213

REACTIONS (5)
  - C-REACTIVE PROTEIN INCREASED [None]
  - MUSCLE DISORDER [None]
  - MUSCULOSKELETAL PAIN [None]
  - MUSCULOSKELETAL STIFFNESS [None]
  - RED BLOOD CELL SEDIMENTATION RATE INCREASED [None]
